FAERS Safety Report 10869700 (Version 4)
Quarter: 2015Q2

REPORT INFORMATION
  Report Type: Report from Study
  Country: US (occurrence: US)
  Receive Date: 20150226
  Receipt Date: 20150408
  Transmission Date: 20150821
  Serious: Yes (Hospitalization)
  Sender: FDA-Public Use
  Company Number: US-BIOGENIDEC-2015BI017978

PATIENT
  Age: 61 Year
  Sex: Male

DRUGS (1)
  1. PLEGRIDY [Suspect]
     Active Substance: PEGINTERFERON BETA-1A
     Indication: MULTIPLE SCLEROSIS
     Dates: start: 20150123

REACTIONS (12)
  - Multiple sclerosis [Not Recovered/Not Resolved]
  - Syncope [Recovered/Resolved]
  - Abdominal pain [Recovered/Resolved]
  - Aphasia [Recovered/Resolved]
  - Muscular weakness [Not Recovered/Not Resolved]
  - Dialysis related complication [Recovered/Resolved]
  - Vomiting [Unknown]
  - Drug ineffective [Not Recovered/Not Resolved]
  - Fear [Unknown]
  - Tremor [Unknown]
  - Confusional state [Recovered/Resolved]
  - Memory impairment [Not Recovered/Not Resolved]

NARRATIVE: CASE EVENT DATE: 2015
